FAERS Safety Report 8257191-4 (Version None)
Quarter: 2012Q1

REPORT INFORMATION
  Report Type: 
  Country: None (occurrence: None)
  Receive Date: 20120330
  Receipt Date: 20120330
  Transmission Date: 20120608
  Serious: Yes (Other)
  Sender: FDA-Public Use
  Company Number: None

PATIENT
  Sex: Female
  Weight: 47.6277 kg

DRUGS (1)
  1. PROACTIV SOLUTION KATIE RODAN + KATHY FIELDS [Suspect]
     Indication: ACNE
     Dosage: SMALL ONCE A DAY 049
     Route: 061
     Dates: start: 20120311

REACTIONS (5)
  - BURNING SENSATION [None]
  - PRURITUS [None]
  - HYPERSENSITIVITY [None]
  - RASH [None]
  - CHEMICAL INJURY [None]
